FAERS Safety Report 5874674-2 (Version None)
Quarter: 2008Q3

REPORT INFORMATION
  Report Type: 
  Country: None (occurrence: None)
  Receive Date: 20080903
  Receipt Date: 20080825
  Transmission Date: 20090109
  Serious: Yes (Hospitalization)
  Sender: FDA-Public Use
  Company Number: GXKR2008NO08062

PATIENT
  Age: 67 Year
  Sex: Female

DRUGS (1)
  1. SIMVASTATIN [Suspect]
     Dosage: ORAL
     Route: 048
     Dates: start: 20080506, end: 20080527

REACTIONS (4)
  - C-REACTIVE PROTEIN INCREASED [None]
  - LIPOEDEMA [None]
  - SPINAL OSTEOARTHRITIS [None]
  - URTICARIA [None]
